FAERS Safety Report 11423025 (Version 1)
Quarter: 2015Q3

REPORT INFORMATION
  Report Type: Spontaneous
  Country: US (occurrence: None)
  Receive Date: 20150826
  Receipt Date: 20150826
  Transmission Date: 20151125
  Serious: No
  Sender: FDA-Public Use
  Company Number: None

PATIENT
  Age: 35 Year
  Sex: Male
  Weight: 99.79 kg

DRUGS (2)
  1. ZYVOX [Suspect]
     Active Substance: LINEZOLID
     Indication: ARTHROPOD BITE
     Dosage: 2 PILL
     Route: 048
     Dates: start: 20150814, end: 20150824
  2. ZYVOX [Suspect]
     Active Substance: LINEZOLID
     Indication: INFECTION
     Dosage: 2 PILL
     Route: 048
     Dates: start: 20150814, end: 20150824

REACTIONS (3)
  - Tongue disorder [None]
  - Feeling abnormal [None]
  - Acne [None]

NARRATIVE: CASE EVENT DATE: 20150814
